FAERS Safety Report 4497598-4 (Version None)
Quarter: 2004Q4

REPORT INFORMATION
  Report Type: 
  Country: None (occurrence: None)
  Receive Date: 20041104
  Receipt Date: 20041022
  Transmission Date: 20050328
  Serious: Yes (Death, Hospitalization, Other)
  Sender: FDA-Public Use
  Company Number: WAES 0403USA00160

PATIENT
  Age: 72 Year
  Sex: Male

DRUGS (2)
  1. COZAAR [Suspect]
     Indication: HYPERTENSION
     Dosage: 25 MG/DAILY PO
     Route: 048
     Dates: start: 20010219, end: 20030508
  2. THYRADIN-S [Concomitant]

REACTIONS (6)
  - GENERAL PHYSICAL HEALTH DETERIORATION [None]
  - LABORATORY TEST ABNORMAL [None]
  - LUNG NEOPLASM [None]
  - LYMPHADENOPATHY [None]
  - LYMPHOMA [None]
  - MALIGNANT NEOPLASM PROGRESSION [None]
